FAERS Safety Report 11598443 (Version 1)
Quarter: 2015Q3

REPORT INFORMATION
  Report Type: Spontaneous
  Country: US (occurrence: US)
  Receive Date: 20150916
  Receipt Date: 20150916
  Transmission Date: 20151125
  Serious: No
  Sender: FDA-Public Use
  Company Number: US-ELI_LILLY_AND_COMPANY-US200712003453

PATIENT
  Sex: Female

DRUGS (4)
  1. FORTEO [Suspect]
     Active Substance: TERIPARATIDE
     Indication: ANKLE FRACTURE
     Dosage: UNK, UNKNOWN
     Route: 058
     Dates: start: 200611
  2. LISINOPRIL. [Concomitant]
     Active Substance: LISINOPRIL
  3. STATIN                             /00084401/ [Concomitant]
     Indication: BLOOD CHOLESTEROL
  4. CIMETIDIN [Concomitant]
     Indication: DYSPEPSIA

REACTIONS (2)
  - Pruritus generalised [Recovering/Resolving]
  - Erythema [Recovering/Resolving]
